FAERS Safety Report 7002696-7 (Version None)
Quarter: 2010Q3

REPORT INFORMATION
  Report Type: 
  Country: None (occurrence: None)
  Receive Date: 20100920
  Receipt Date: 20100910
  Transmission Date: 20110219
  Serious: Yes (Hospitalization)
  Sender: FDA-Public Use
  Company Number: IT-ABBOTT-10P-083-0669627-00

PATIENT
  Age: 45 Year
  Sex: Female

DRUGS (4)
  1. CYCLOSPORINE [Suspect]
     Indication: ALOPECIA UNIVERSALIS
     Dates: start: 20090101
  2. CYCLOSPORINE [Suspect]
     Dates: start: 20090301
  3. SIMVASTATIN [Suspect]
     Indication: BLOOD CHOLESTEROL INCREASED
     Dates: start: 20090701
  4. AZATHIOPRINE [Concomitant]
     Indication: ALOPECIA UNIVERSALIS

REACTIONS (2)
  - MYOGLOBINURIA [None]
  - RENAL FAILURE ACUTE [None]
